APPROVED DRUG PRODUCT: LEXAPRO
Active Ingredient: ESCITALOPRAM OXALATE
Strength: EQ 5MG BASE
Dosage Form/Route: TABLET;ORAL
Application: N021323 | Product #001 | TE Code: AB
Applicant: ABBVIE INC
Approved: Aug 14, 2002 | RLD: Yes | RS: No | Type: RX

EXCLUSIVITY:
Code: NPP | Date: May 12, 2026